FAERS Safety Report 24940867 (Version 1)
Quarter: 2025Q1

REPORT INFORMATION
  Report Type: Report from Study
  Country: US (occurrence: US)
  Receive Date: 20250207
  Receipt Date: 20250207
  Transmission Date: 20250408
  Serious: Yes (Other)
  Sender: EMD SERONO INC
  Company Number: US-Merck Healthcare KGaA-2025005382

PATIENT
  Sex: Male

DRUGS (4)
  1. MAVENCLAD [Suspect]
     Active Substance: CLADRIBINE
     Indication: Multiple sclerosis
     Dates: start: 20190812, end: 20190816
  2. MAVENCLAD [Suspect]
     Active Substance: CLADRIBINE
     Dates: start: 20190911, end: 20190915
  3. MAVENCLAD [Suspect]
     Active Substance: CLADRIBINE
     Dates: start: 20201207, end: 20201211
  4. MAVENCLAD [Suspect]
     Active Substance: CLADRIBINE
     Dates: start: 20210105, end: 20210109

REACTIONS (2)
  - Oesophageal carcinoma [Unknown]
  - Pain in extremity [Unknown]
